FAERS Safety Report 17638243 (Version 1)
Quarter: 2020Q2

REPORT INFORMATION
  Report Type: Spontaneous
  Country: US (occurrence: US)
  Receive Date: 20200407
  Receipt Date: 20200407
  Transmission Date: 20200713
  Serious: No
  Sender: FDA-Public Use
  Company Number: None

PATIENT
  Age: 54 Year
  Sex: Male
  Weight: 83.9 kg

DRUGS (2)
  1. NIVOLUMAB [Suspect]
     Active Substance: NIVOLUMAB
  2. RUCAPARIB [Suspect]
     Active Substance: RUCAPARIB

REACTIONS (4)
  - Generalised tonic-clonic seizure [None]
  - Disease progression [None]
  - Computerised tomogram head abnormal [None]
  - Postictal state [None]
